FAERS Safety Report 7122092-1 (Version None)
Quarter: 2010Q4

REPORT INFORMATION
  Report Type: 
  Country: None (occurrence: None)
  Receive Date: 20101124
  Receipt Date: 20101115
  Transmission Date: 20110411
  Serious: Yes (Hospitalization)
  Sender: FDA-Public Use
  Company Number: FR-PFIZER INC-2010144796

PATIENT
  Age: 76 Year
  Sex: Female

DRUGS (10)
  1. ATARAX [Suspect]
     Indication: PRODUCT USED FOR UNKNOWN INDICATION
     Dosage: 25 MG, 3X/DAY
     Route: 048
     Dates: start: 20091016, end: 20091211
  2. SEROPLEX [Suspect]
     Indication: PRODUCT USED FOR UNKNOWN INDICATION
     Dosage: UNK
     Route: 048
     Dates: end: 20091130
  3. THERALENE [Suspect]
     Indication: PRODUCT USED FOR UNKNOWN INDICATION
     Dosage: 15 MG, UNK
     Route: 048
     Dates: start: 20091030, end: 20091211
  4. IKARAN [Suspect]
     Indication: PRODUCT USED FOR UNKNOWN INDICATION
     Dosage: UNK
     Route: 048
     Dates: start: 20091031, end: 20091130
  5. ATHYMIL [Suspect]
     Indication: PRODUCT USED FOR UNKNOWN INDICATION
     Dosage: 30 MG, 2X/DAY
     Route: 048
     Dates: start: 20091016
  6. DIPIPERON [Suspect]
     Indication: PRODUCT USED FOR UNKNOWN INDICATION
     Dosage: 90 MG, 1X/DAY
     Route: 048
     Dates: start: 20090901, end: 20091211
  7. EQUANIL [Suspect]
     Indication: PRODUCT USED FOR UNKNOWN INDICATION
     Dosage: 400 MG, 4X/DAY
     Route: 048
     Dates: start: 20090901
  8. MEPRONIZINE [Suspect]
     Indication: PRODUCT USED FOR UNKNOWN INDICATION
     Dosage: 1 DF, 1X/DAY
     Route: 048
     Dates: start: 20091030, end: 20091211
  9. SERETIDE [Concomitant]
     Dosage: 1 UNIT, 2X/DAY
  10. DITROPAN [Concomitant]
     Dosage: 5 MG, 2X/DAY
     Dates: start: 20090901

REACTIONS (3)
  - CONVULSION [None]
  - HYPONATRAEMIA [None]
  - MALAISE [None]
